FAERS Safety Report 6568071-4 (Version None)
Quarter: 2010Q1

REPORT INFORMATION
  Report Type: 
  Country: None (occurrence: None)
  Receive Date: 20100129
  Receipt Date: 20100113
  Transmission Date: 20100710
  Serious: Yes (Death, Hospitalization, Other)
  Sender: FDA-Public Use
  Company Number: 2009AC000447

PATIENT
  Age: 78 Year
  Sex: Female

DRUGS (22)
  1. DIGOXIN [Suspect]
     Dosage: PO
     Route: 048
  2. POTASSIUM [Concomitant]
  3. FUROSEMIDE [Concomitant]
  4. METOPROLOL TARTRATE [Concomitant]
  5. CLONIDINE [Concomitant]
  6. CARDIZEM [Concomitant]
  7. EPOGEN [Concomitant]
  8. LABETALOL HCL [Concomitant]
  9. FERRLECIT [Concomitant]
  10. INSPRA [Concomitant]
  11. LISINOPRIL [Concomitant]
  12. LOPRESSOR [Concomitant]
  13. REGLAN [Concomitant]
  14. RENAGEL [Concomitant]
  15. ASPIRIN [Concomitant]
  16. IRON [Concomitant]
  17. VANCOMYCIN [Concomitant]
  18. SYNTHROID [Concomitant]
  19. ALBUMIN (HUMAN) [Concomitant]
  20. NITROGLYCERIN [Concomitant]
  21. PROCRIT [Concomitant]
  22. PHOSLO [Concomitant]

REACTIONS (26)
  - ACTIVITIES OF DAILY LIVING IMPAIRED [None]
  - ACUTE MYOCARDIAL INFARCTION [None]
  - ANHEDONIA [None]
  - ANXIETY [None]
  - ATRIAL FIBRILLATION [None]
  - BACK PAIN [None]
  - CLOSTRIDIAL INFECTION [None]
  - DEFORMITY [None]
  - DYSPHAGIA [None]
  - ECONOMIC PROBLEM [None]
  - EMOTIONAL DISORDER [None]
  - HEART RATE DECREASED [None]
  - HYPERTENSIVE CRISIS [None]
  - HYPOKALAEMIA [None]
  - HYPOXIA [None]
  - INJURY [None]
  - PAIN [None]
  - PULMONARY OEDEMA [None]
  - RENAL FAILURE ACUTE [None]
  - SEPSIS [None]
  - SOCIAL PROBLEM [None]
  - SPEECH DISORDER [None]
  - THERAPEUTIC AGENT TOXICITY [None]
  - TRICHOMONIASIS [None]
  - URINARY TRACT INFECTION [None]
  - WEIGHT INCREASED [None]
